FAERS Safety Report 7964876-3 (Version None)
Quarter: 2011Q4

REPORT INFORMATION
  Report Type: 
  Country: None (occurrence: None)
  Receive Date: 20111208
  Receipt Date: 20111208
  Transmission Date: 20120403
  Serious: No
  Sender: FDA-Public Use
  Company Number: None

PATIENT
  Age: 24 Year
  Sex: Female

DRUGS (1)
  1. ZOMIG [Suspect]
     Indication: HEADACHE
     Dosage: 5MG
     Route: 048
     Dates: start: 20110602, end: 20110602

REACTIONS (4)
  - HOT FLUSH [None]
  - PAIN IN EXTREMITY [None]
  - SENSATION OF HEAVINESS [None]
  - CHILLS [None]
